FAERS Safety Report 10685231 (Version 1)
Quarter: 2014Q4

REPORT INFORMATION
  Report Type: Report from Study
  Country: US (occurrence: US)
  Receive Date: 20141231
  Receipt Date: 20141231
  Transmission Date: 20150529
  Serious: Yes (Hospitalization)
  Sender: FDA-Public Use
  Company Number: US-BAYER-2014-188564

PATIENT
  Age: 77 Year
  Sex: Female

DRUGS (1)
  1. STIVARGA [Suspect]
     Active Substance: REGORAFENIB
     Indication: RECTAL CANCER
     Dosage: 160 MG, QD AT THE SAME TIME (1-21 DAYS OF EACH 28 DAYS CYCLE)
     Route: 048
     Dates: start: 20141023, end: 20141218

REACTIONS (2)
  - Adverse drug reaction [Recovered/Resolved]
  - Organ failure [Recovered/Resolved]
